FAERS Safety Report 7397261-6 (Version None)
Quarter: 2011Q2

REPORT INFORMATION
  Report Type: 
  Country: None (occurrence: None)
  Receive Date: 20110406
  Receipt Date: 20110329
  Transmission Date: 20111010
  Serious: Yes (Other)
  Sender: FDA-Public Use
  Company Number: FR-SANOFI-AVENTIS-2011SA020065

PATIENT
  Age: 70 Year
  Sex: Male

DRUGS (4)
  1. COUMADIN [Concomitant]
     Route: 065
     Dates: start: 20101101
  2. MULTAQ [Suspect]
     Route: 048
     Dates: start: 20101101, end: 20101201
  3. CORDARONE [Suspect]
     Route: 048
     Dates: start: 20101201
  4. PREVISCAN [Concomitant]
     Route: 065
     Dates: start: 20101201

REACTIONS (1)
  - ANGIOEDEMA [None]
